FAERS Safety Report 7238869-8 (Version None)
Quarter: 2011Q1

REPORT INFORMATION
  Report Type: 
  Country: None (occurrence: None)
  Receive Date: 20110121
  Receipt Date: 20110117
  Transmission Date: 20110831
  Serious: Yes (Death, Life-Threatening, Hospitalization, Other)
  Sender: FDA-Public Use
  Company Number: PHHY2011BR03813

PATIENT
  Sex: Male

DRUGS (1)
  1. FORASEQ [Suspect]
     Indication: EMPHYSEMA
     Dosage: UNK
     Route: 048

REACTIONS (6)
  - PLATELET COUNT DECREASED [None]
  - PNEUMONIA [None]
  - RENAL DISORDER [None]
  - PYREXIA [None]
  - ANAEMIA [None]
  - RENAL FAILURE [None]
